FAERS Safety Report 8161549-1 (Version None)
Quarter: 2012Q1

REPORT INFORMATION
  Report Type: 
  Country: None (occurrence: None)
  Receive Date: 20120224
  Receipt Date: 20120222
  Transmission Date: 20120608
  Serious: Yes (Life-Threatening, Hospitalization)
  Sender: FDA-Public Use
  Company Number: DE-AMGEN-DEUSP2012011671

PATIENT
  Sex: Female

DRUGS (2)
  1. AVASTIN [Concomitant]
     Indication: BREAST CANCER
  2. XGEVA [Suspect]
     Indication: PRODUCT USED FOR UNKNOWN INDICATION

REACTIONS (2)
  - RECTAL PERFORATION [None]
  - PNEUMONIA [None]
